FAERS Safety Report 7610476-4 (Version None)
Quarter: 2011Q3

REPORT INFORMATION
  Report Type: 
  Country: None (occurrence: None)
  Receive Date: 20110715
  Receipt Date: 20090205
  Transmission Date: 20111222
  Serious: Yes (Hospitalization, Other)
  Sender: FDA-Public Use
  Company Number: US-BAYER-200912321NA

PATIENT
  Age: 47 Year
  Sex: Male
  Weight: 143 kg

DRUGS (17)
  1. VIAGRA [Concomitant]
     Dosage: AS NEEDED
  2. CALCIUM CHLORIDE [Concomitant]
     Dosage: UNK
     Route: 042
     Dates: start: 20060408, end: 20060408
  3. NITROGLYCERIN [Concomitant]
     Dosage: 0.4MG PRN
     Route: 060
  4. WELLBUTRIN [Concomitant]
     Dosage: 300 MG, QD
     Route: 048
  5. HEPARIN [Concomitant]
     Dosage: UNK
     Route: 042
     Dates: start: 20060407, end: 20060408
  6. LOPRESSOR [Concomitant]
     Dosage: 25 MG, QD
     Route: 048
     Dates: start: 20020307
  7. VASOTEC [Concomitant]
     Dosage: 20 MG, BID
     Route: 048
     Dates: start: 20020501
  8. ZOLOFT [Concomitant]
     Dosage: 100 MG, QD
     Route: 048
  9. DOPAMINE HCL [Concomitant]
     Dosage: UNK
     Route: 042
     Dates: start: 20060408
  10. VERSED [Concomitant]
     Dosage: UNK
     Route: 042
     Dates: start: 20060408, end: 20060408
  11. NITROGLYCERIN [Concomitant]
     Dosage: UNK
     Route: 042
     Dates: start: 20060407, end: 20060409
  12. DIPRIVAN [Concomitant]
     Dosage: UNK
     Route: 042
     Dates: start: 20060408, end: 20060408
  13. TRASYLOL [Suspect]
     Indication: CORONARY ARTERY BYPASS
     Dosage: UNK
     Route: 042
     Dates: start: 20060408, end: 20060408
  14. LASIX [Concomitant]
     Dosage: 20 MG, QD
     Route: 048
  15. SUFENTANIL CITRATE [Concomitant]
     Dosage: UNK
     Route: 042
     Dates: start: 20060408, end: 20060408
  16. AMIDATE [Concomitant]
     Dosage: UNK
     Route: 042
     Dates: start: 20060408, end: 20060408
  17. FENTANYL [Concomitant]
     Dosage: UNK
     Route: 042
     Dates: start: 20060408, end: 20060408

REACTIONS (8)
  - VASCULAR DEMENTIA [None]
  - BIPOLAR I DISORDER [None]
  - RENAL FAILURE [None]
  - CEREBROVASCULAR ACCIDENT [None]
  - RENAL FAILURE ACUTE [None]
  - PAIN [None]
  - UNEVALUABLE EVENT [None]
  - INJURY [None]
